FAERS Safety Report 9032492 (Version 1)
Quarter: 2013Q1

REPORT INFORMATION
  Report Type: Spontaneous
  Country: US (occurrence: US)
  Receive Date: 20130125
  Receipt Date: 20130125
  Transmission Date: 20140127
  Serious: Yes (Other)
  Sender: FDA-Public Use
  Company Number: US-JNJFOC-20130111839

PATIENT
  Age: 24 Year
  Sex: Female
  Weight: 58.97 kg

DRUGS (2)
  1. NUCYNTA [Suspect]
     Indication: BACK PAIN
     Dosage: AS NEEDED
     Route: 048
     Dates: start: 201212, end: 20130117
  2. GILENYA [Concomitant]
     Indication: MULTIPLE SCLEROSIS
     Dosage: ONCE DAILY
     Route: 048
     Dates: start: 20130107

REACTIONS (4)
  - Hemiparesis [Not Recovered/Not Resolved]
  - Hypokinesia [Not Recovered/Not Resolved]
  - Dysphagia [Recovered/Resolved]
  - Muscle spasms [Not Recovered/Not Resolved]
